FAERS Safety Report 7405118-7 (Version None)
Quarter: 2011Q2

REPORT INFORMATION
  Report Type: 
  Country: None (occurrence: None)
  Receive Date: 20110404
  Receipt Date: 20110325
  Transmission Date: 20111010
  Serious: Yes (Other)
  Sender: FDA-Public Use
  Company Number: 2010SP046454

PATIENT
  Age: 33 Year
  Sex: Female
  Weight: 61.6892 kg

DRUGS (1)
  1. NUVARING [Suspect]
     Indication: CONTRACEPTION
     Dates: start: 20071210, end: 20080714

REACTIONS (4)
  - BACK PAIN [None]
  - MENTAL DISORDER [None]
  - EMOTIONAL DISORDER [None]
  - DEEP VEIN THROMBOSIS [None]
